FAERS Safety Report 9258824 (Version 2)
Quarter: 2013Q3

REPORT INFORMATION
  Report Type: Report from Study
  Country: MX (occurrence: MX)
  Receive Date: 20130426
  Receipt Date: 20130712
  Transmission Date: 20140515
  Serious: Yes (Disabling)
  Sender: FDA-Public Use
  Company Number: MX-ABBOTT-13X-107-1081720-00

PATIENT
  Age: 45 Year
  Sex: Female
  Weight: 59 kg

DRUGS (1)
  1. KLARICID OD [Suspect]
     Indication: PHARYNGITIS
     Route: 048
     Dates: start: 20130414, end: 20130420

REACTIONS (2)
  - Hearing impaired [Not Recovered/Not Resolved]
  - Ear discomfort [Not Recovered/Not Resolved]
